FAERS Safety Report 22014692 (Version 3)
Quarter: 2023Q1

REPORT INFORMATION
  Report Type: Other
  Country: US (occurrence: None)
  Receive Date: 20230221
  Receipt Date: 20230228
  Transmission Date: 20230418
  Serious: No
  Sender: FDA-Public Use
  Company Number: US-ROCHE-3290398

PATIENT
  Age: 75 Year
  Sex: Female

DRUGS (1)
  1. OCREVUS [Suspect]
     Active Substance: OCRELIZUMAB
     Indication: Relapsing multiple sclerosis
     Dosage: DOT: 10/NOV/2022,10/MAY/2022, 05/NOV/2021, 04/MAY/2021, 03/NOV/2020, 09/APR/2020
     Route: 065
     Dates: start: 20200409

REACTIONS (1)
  - COVID-19 [Not Recovered/Not Resolved]
